FAERS Safety Report 24771794 (Version 2)
Quarter: 2025Q1

REPORT INFORMATION
  Report Type: Spontaneous
  Country: JP (occurrence: JP)
  Receive Date: 20241224
  Receipt Date: 20250109
  Transmission Date: 20250409
  Serious: Yes (Disabling, Other)
  Sender: OTSUKA
  Company Number: JP-OTSUKA-2024_034198

PATIENT
  Age: 43 Year
  Sex: Male

DRUGS (1)
  1. ABILIFY [Suspect]
     Active Substance: ARIPIPRAZOLE
     Indication: Product used for unknown indication
     Route: 065
     Dates: start: 201810, end: 202201

REACTIONS (3)
  - Hypoxic-ischaemic encephalopathy [Unknown]
  - Mental impairment [Unknown]
  - Diabetic ketoacidosis [Unknown]
